FAERS Safety Report 5719501-9 (Version None)
Quarter: 2008Q2

REPORT INFORMATION
  Report Type: 
  Country: None (occurrence: None)
  Receive Date: 20080428
  Receipt Date: 20080417
  Transmission Date: 20081010
  Serious: Yes (Other)
  Sender: FDA-Public Use
  Company Number: US-ROCHE-559568

PATIENT
  Age: 55 Year
  Sex: Female

DRUGS (2)
  1. BONIVA [Suspect]
     Indication: OSTEOPOROSIS
     Route: 048
     Dates: start: 20080201
  2. AVINZA [Concomitant]

REACTIONS (6)
  - APPENDICITIS [None]
  - ARTHRALGIA [None]
  - BONE PAIN [None]
  - MYALGIA [None]
  - PAIN IN EXTREMITY [None]
  - RENAL CYST [None]
